FAERS Safety Report 14028285 (Version 3)
Quarter: 2018Q1

REPORT INFORMATION
  Report Type: Report from Study
  Country: US (occurrence: US)
  Receive Date: 20170930
  Receipt Date: 20180219
  Transmission Date: 20180508
  Serious: Yes (Other)
  Sender: FDA-Public Use
  Company Number: US-AMGEN-USASL2017145517

PATIENT
  Age: 58 Year
  Sex: Female

DRUGS (3)
  1. REPATHA [Suspect]
     Active Substance: EVOLOCUMAB
     Indication: HYPERCHOLESTEROLAEMIA
     Dosage: 140 MG, Q2WK
     Route: 058
     Dates: start: 201612
  2. REPATHA [Suspect]
     Active Substance: EVOLOCUMAB
     Indication: BLOOD CHOLESTEROL ABNORMAL
  3. TRULICITY [Concomitant]
     Active Substance: DULAGLUTIDE

REACTIONS (11)
  - Abdominal discomfort [Recovered/Resolved]
  - Intervertebral disc protrusion [Not Recovered/Not Resolved]
  - Blood calcium increased [Unknown]
  - Memory impairment [Unknown]
  - Post procedural inflammation [Unknown]
  - Plantar fasciitis [Unknown]
  - Sleep disorder due to a general medical condition [Unknown]
  - Radical neck dissection [Unknown]
  - Spinal fusion surgery [Unknown]
  - Polymyalgia rheumatica [Unknown]
  - Impaired gastric emptying [Unknown]

NARRATIVE: CASE EVENT DATE: 201802
